FAERS Safety Report 24150489 (Version 4)
Quarter: 2024Q4

REPORT INFORMATION
  Report Type: Report from Study
  Country: US (occurrence: US)
  Receive Date: 20240730
  Receipt Date: 20241121
  Transmission Date: 20250115
  Serious: No
  Sender: MERCK
  Company Number: US-009507513-2407USA000671

PATIENT
  Sex: Female
  Weight: 59.41 kg

DRUGS (20)
  1. SOTATERCEPT [Suspect]
     Active Substance: SOTATERCEPT
     Indication: Pulmonary arterial hypertension
     Dosage: STRENGTH: 45 MG, 0.8 ML SUBCUTANEOUSLY, Q3W
     Route: 058
     Dates: start: 2024
  2. WINREVAIR [Suspect]
     Active Substance: SOTATERCEPT-CSRK
     Dosage: UNK
     Dates: start: 2024
  3. REMODULIN [Suspect]
     Active Substance: TREPROSTINIL
     Indication: Pulmonary arterial hypertension
     Dosage: UNK, STRENGTH: 5 MG/ML
     Route: 058
     Dates: start: 20240108
  4. REMODULIN [Suspect]
     Active Substance: TREPROSTINIL
     Dosage: 0.040 MICROGRAM/KG, (SELF-FILL WITH 2.2 ML PER CASSETTE, AT THE PUMP RATE OF 24 MCL PER HOUR), CONTI
     Route: 058
     Dates: start: 2024
  5. REMODULIN [Suspect]
     Active Substance: TREPROSTINIL
     Dosage: 0.033 MICROGRAM PER KILOGRAM (1.9 ML PER CASSETTE WITH PUMP RATE OF 20 MCL PER HOUR), CONTINUOUS, ST
     Route: 058
     Dates: start: 2024
  6. REMODULIN [Suspect]
     Active Substance: TREPROSTINIL
     Dosage: 0.015 MICROGRAM PER KILOGRAM (SELF-FILLED WITH 3 ML PER CASSETTE WITH PUMP RATE OF 45 MCL PER HOUR),
     Route: 058
     Dates: start: 2024
  7. PREDNISONE [Concomitant]
     Active Substance: PREDNISONE
     Dosage: UNK
  8. FAMOTIDINE [Concomitant]
     Active Substance: FAMOTIDINE
     Dosage: UNK
  9. ALPRAZOLAM [Concomitant]
     Active Substance: ALPRAZOLAM
     Dosage: UNK
  10. SULFAMETHOXAZOLE AND TRIMETHOPRIM [Concomitant]
     Active Substance: SULFAMETHOXAZOLE\TRIMETHOPRIM
     Dosage: UNK
  11. TADALAFIL [Concomitant]
     Active Substance: TADALAFIL
     Dosage: UNK
  12. TRELEGY ELLIPTA [Concomitant]
     Active Substance: FLUTICASONE FUROATE\UMECLIDINIUM BROMIDE\VILANTEROL TRIFENATATE
     Dosage: UNK
  13. CRESTOR [Concomitant]
     Active Substance: ROSUVASTATIN CALCIUM
     Dosage: UNK
  14. ASPIRIN [Concomitant]
     Active Substance: ASPIRIN
     Dosage: UNK
  15. LORATADINE [Concomitant]
     Active Substance: LORATADINE
     Dosage: UNK
  16. JARDIANCE [Concomitant]
     Active Substance: EMPAGLIFLOZIN
     Dosage: UNK
  17. ALBUTEROL SULFATE [Concomitant]
     Active Substance: ALBUTEROL SULFATE
     Dosage: UNK
  18. LIDOCAINE HYDROCHLORIDE [Concomitant]
     Active Substance: LIDOCAINE HYDROCHLORIDE
     Dosage: UNK
  19. OXYGEN [Concomitant]
     Active Substance: OXYGEN
     Dosage: UNK
  20. CELLCEPT [Concomitant]
     Active Substance: MYCOPHENOLATE MOFETIL
     Dosage: UNK

REACTIONS (6)
  - Dyspnoea [Recovering/Resolving]
  - Pain in jaw [Recovering/Resolving]
  - Cough [Unknown]
  - Injection site pain [Recovered/Resolved]
  - Headache [Recovering/Resolving]
  - Dizziness [Recovering/Resolving]

NARRATIVE: CASE EVENT DATE: 20240101
